FAERS Safety Report 17362348 (Version 1)
Quarter: 2020Q3

REPORT INFORMATION
  Report Type: Spontaneous
  Country: IE (occurrence: IE)
  Receive Date: 20200203
  Receipt Date: 20200203
  Transmission Date: 20201105
  Serious: Yes (Life-Threatening)
  Sender: FDA-Public Use
  Company Number: IE-ROCHE-2533554

PATIENT
  Age: 77 Year
  Sex: Female
  Weight: 76.3 kg

DRUGS (2)
  1. POLATUZUMAB VEDOTIN. [Suspect]
     Active Substance: POLATUZUMAB VEDOTIN
     Indication: DIFFUSE LARGE B-CELL LYMPHOMA
     Route: 065
  2. MABTHERA [Suspect]
     Active Substance: RITUXIMAB
     Indication: DIFFUSE LARGE B-CELL LYMPHOMA
     Route: 065

REACTIONS (1)
  - Diffuse large B-cell lymphoma recurrent [Unknown]

NARRATIVE: CASE EVENT DATE: 20190807
